FAERS Safety Report 23940631 (Version 1)
Quarter: 2024Q2

REPORT INFORMATION
  Report Type: Spontaneous
  Country: US (occurrence: US)
  Receive Date: 20240605
  Receipt Date: 20240605
  Transmission Date: 20240715
  Serious: Yes (Other)
  Sender: FDA-Public Use
  Company Number: US-ALKEM LABORATORIES LIMITED-IN-ALKEM-2024-06133

PATIENT
  Age: 53 Year
  Sex: Male

DRUGS (8)
  1. VANCOMYCIN [Interacting]
     Active Substance: VANCOMYCIN
     Indication: Gangrene
     Dosage: 1500 MILLIGRAM, BID
     Route: 042
  2. VANCOMYCIN [Interacting]
     Active Substance: VANCOMYCIN
     Indication: Ulcer
  3. VANCOMYCIN [Interacting]
     Active Substance: VANCOMYCIN
     Indication: Osteomyelitis
  4. VANCOMYCIN [Interacting]
     Active Substance: VANCOMYCIN
     Indication: Limb injury
  5. PIPERACILLIN SODIUM\TAZOBACTAM SODIUM [Interacting]
     Active Substance: PIPERACILLIN SODIUM\TAZOBACTAM SODIUM
     Indication: Gangrene
     Dosage: UNK
     Route: 065
  6. PIPERACILLIN SODIUM\TAZOBACTAM SODIUM [Interacting]
     Active Substance: PIPERACILLIN SODIUM\TAZOBACTAM SODIUM
     Indication: Ulcer
  7. PIPERACILLIN SODIUM\TAZOBACTAM SODIUM [Interacting]
     Active Substance: PIPERACILLIN SODIUM\TAZOBACTAM SODIUM
     Indication: Osteomyelitis
  8. PIPERACILLIN SODIUM\TAZOBACTAM SODIUM [Interacting]
     Active Substance: PIPERACILLIN SODIUM\TAZOBACTAM SODIUM
     Indication: Limb injury

REACTIONS (2)
  - Acute kidney injury [Recovering/Resolving]
  - Drug level increased [Unknown]
